FAERS Safety Report 8231119-5 (Version None)
Quarter: 2012Q1

REPORT INFORMATION
  Report Type: 
  Country: None (occurrence: None)
  Receive Date: 20120322
  Receipt Date: 20120322
  Transmission Date: 20120608
  Serious: Yes (Life-Threatening, Hospitalization, Other)
  Sender: FDA-Public Use
  Company Number: None

PATIENT
  Sex: Female
  Weight: 85 kg

DRUGS (1)
  1. YASMIN [Suspect]
     Indication: POLYCYSTIC OVARIES
     Dosage: 1 TABLET
     Route: 048
     Dates: start: 20070815, end: 20110405

REACTIONS (1)
  - DEEP VEIN THROMBOSIS [None]
